FAERS Safety Report 18193466 (Version 1)
Quarter: 2020Q3

REPORT INFORMATION
  Report Type: Spontaneous
  Country: US (occurrence: US)
  Receive Date: 20200825
  Receipt Date: 20200825
  Transmission Date: 20201103
  Serious: Yes (Other)
  Sender: FDA-Public Use
  Company Number: US-SHIRE-US202027341

PATIENT
  Age: 62 Year
  Sex: Female
  Weight: 82 kg

DRUGS (2)
  1. CUVITRU [Suspect]
     Active Substance: HUMAN IMMUNOGLOBULIN G
     Dosage: 6 GRAM, UNKNOWN
     Route: 065
     Dates: start: 20180904
  2. CUVITRU [Suspect]
     Active Substance: HUMAN IMMUNOGLOBULIN G
     Indication: PRIMARY IMMUNODEFICIENCY SYNDROME
     Dosage: 11 GRAM, 1X/WEEK
     Route: 058
     Dates: start: 20180904

REACTIONS (12)
  - Skin disorder [Unknown]
  - Sinusitis [Unknown]
  - Fatigue [Unknown]
  - Staphylococcal infection [Unknown]
  - Escherichia infection [Unknown]
  - Fungal infection [Recovered/Resolved]
  - Unevaluable event [Unknown]
  - Wound infection [Unknown]
  - Hypersomnia [Unknown]
  - Bronchitis [Not Recovered/Not Resolved]
  - Dysphonia [Unknown]
  - Weight increased [Unknown]

NARRATIVE: CASE EVENT DATE: 20190730
